FAERS Safety Report 11518499 (Version 1)
Quarter: 2015Q3

REPORT INFORMATION
  Report Type: Spontaneous
  Country: JP (occurrence: JP)
  Receive Date: 20150917
  Receipt Date: 20150917
  Transmission Date: 20151125
  Serious: Yes (Life-Threatening, Hospitalization, Other)
  Sender: FDA-Public Use
  Company Number: JP-TAKEDA-2015TJP001259

PATIENT
  Age: 71 Year
  Sex: Male
  Weight: 55.5 kg

DRUGS (5)
  1. ATORVASTATIN                       /01326102/ [Concomitant]
     Active Substance: ATORVASTATIN
     Indication: DYSLIPIDAEMIA
     Dosage: 5 MG, UNK
     Route: 048
  2. ACTOS [Suspect]
     Active Substance: PIOGLITAZONE HYDROCHLORIDE
     Dosage: 30 MG, QD
     Route: 048
     Dates: start: 20050310, end: 20130612
  3. PIOGLITAZONE                       /01460202/ [Suspect]
     Active Substance: PIOGLITAZONE HYDROCHLORIDE
     Indication: DIABETES MELLITUS
     Dosage: 30 MG, QD
     Route: 048
     Dates: start: 20130613, end: 20150108
  4. GLIMICRON [Concomitant]
     Active Substance: GLICLAZIDE
     Indication: DIABETES MELLITUS
     Dosage: 40 MG, UNK
     Route: 048
  5. ACTOS [Suspect]
     Active Substance: PIOGLITAZONE HYDROCHLORIDE
     Indication: DIABETES MELLITUS
     Dosage: 15 MG, QD
     Route: 048
     Dates: end: 20050309

REACTIONS (1)
  - Bladder cancer [Recovering/Resolving]

NARRATIVE: CASE EVENT DATE: 20141225
